FAERS Safety Report 20624733 (Version 1)
Quarter: 2022Q1

REPORT INFORMATION
  Report Type: Spontaneous
  Country: SE (occurrence: SE)
  Receive Date: 20220323
  Receipt Date: 20220323
  Transmission Date: 20220423
  Serious: Yes (Other)
  Sender: FDA-Public Use
  Company Number: SE-SUN PHARMACEUTICAL INDUSTRIES LTD-2022R1-330359

PATIENT
  Age: 30 Year
  Sex: Female

DRUGS (4)
  1. CARIPRAZINE [Suspect]
     Active Substance: CARIPRAZINE
     Indication: Autism spectrum disorder
     Dosage: 4.5 MILLIGRAM, DAILY
     Route: 065
     Dates: start: 2020
  2. CARIPRAZINE [Suspect]
     Active Substance: CARIPRAZINE
     Dosage: 6 MILLIGRAM, DAILY
     Route: 065
     Dates: start: 2020
  3. QUETIAPINE [Suspect]
     Active Substance: QUETIAPINE
     Indication: Autism spectrum disorder
     Dosage: 300 MILLIGRAM, DAILY
     Route: 065
     Dates: start: 2020
  4. QUETIAPINE [Suspect]
     Active Substance: QUETIAPINE
     Dosage: 900 MILLIGRAM, DAILY
     Route: 065
     Dates: start: 2020

REACTIONS (2)
  - Anxiety [Unknown]
  - Akathisia [Unknown]

NARRATIVE: CASE EVENT DATE: 20200101
